FAERS Safety Report 7450621-7 (Version None)
Quarter: 2011Q2

REPORT INFORMATION
  Report Type: 
  Country: None (occurrence: None)
  Receive Date: 20110502
  Receipt Date: 20110419
  Transmission Date: 20111010
  Serious: Yes (Disabling, Other)
  Sender: FDA-Public Use
  Company Number: US-ELI_LILLY_AND_COMPANY-US201104006148

PATIENT
  Sex: Female

DRUGS (4)
  1. CENTRUM [Concomitant]
  2. CALTRATE                           /00108001/ [Concomitant]
  3. EVISTA [Suspect]
     Indication: OSTEOPOROSIS
     Dosage: 60 MG, QD
     Dates: start: 20090316
  4. COLACE [Concomitant]

REACTIONS (7)
  - POSTOPERATIVE THROMBOSIS [None]
  - EYE HAEMORRHAGE [None]
  - BLINDNESS UNILATERAL [None]
  - INTRAOCULAR PRESSURE INCREASED [None]
  - PROCEDURAL COMPLICATION [None]
  - EYE DISORDER [None]
  - FOOT DEFORMITY [None]
